FAERS Safety Report 24704505 (Version 6)
Quarter: 2025Q1

REPORT INFORMATION
  Report Type: Other
  Country: FR (occurrence: FR)
  Receive Date: 20241206
  Receipt Date: 20250223
  Transmission Date: 20250408
  Serious: Yes (Hospitalization, Other)
  Sender: GLENMARK
  Company Number: None

PATIENT
  Age: 77 Year
  Sex: Male

DRUGS (3)
  1. ATOVAQUONE [Suspect]
     Active Substance: ATOVAQUONE
     Indication: Pneumocystis jirovecii pneumonia
     Dosage: 5 MILLILITRE, BID (MORNING AND EVENING)
     Route: 048
     Dates: start: 2017
  2. ATOVAQUONE [Suspect]
     Active Substance: ATOVAQUONE
     Indication: Prophylaxis
     Route: 048
     Dates: start: 20241113, end: 20241118
  3. VALACYCLOVIR HYDROCHLORIDE [Concomitant]
     Active Substance: VALACYCLOVIR HYDROCHLORIDE
     Indication: Infection prophylaxis
     Dosage: 2 DOSAGE FORM, QD
     Route: 048
     Dates: start: 2017

REACTIONS (6)
  - Hepatic cytolysis [Recovering/Resolving]
  - Cholestasis [Unknown]
  - Thrombocytopenia [Recovered/Resolved]
  - Gamma-glutamyltransferase increased [Unknown]
  - Product availability issue [Unknown]
  - Intentional product misuse [Unknown]

NARRATIVE: CASE EVENT DATE: 20241115
